FAERS Safety Report 10798101 (Version 1)
Quarter: 2015Q1

REPORT INFORMATION
  Report Type: Report from Study
  Country: US (occurrence: US)
  Receive Date: 20150216
  Receipt Date: 20150216
  Transmission Date: 20150721
  Serious: No
  Sender: FDA-Public Use
  Company Number: US-ABBVIE-14K-163-1233384-00

PATIENT
  Age: 80 Year
  Sex: Female

DRUGS (12)
  1. HUMIRA [Suspect]
     Active Substance: ADALIMUMAB
     Indication: PSORIASIS
     Dates: start: 20140329, end: 20140329
  2. SALINE [Concomitant]
     Active Substance: SODIUM CHLORIDE
     Indication: PSORIASIS
     Dosage: DROPS, TWICE DAILY
  3. DOXEPIN [Concomitant]
     Active Substance: DOXEPIN
     Indication: PRURITUS
     Dosage: AT NIGHT
  4. LISINOPRIL. [Concomitant]
     Active Substance: LISINOPRIL
     Indication: PRODUCT USED FOR UNKNOWN INDICATION
  5. TORSEMIDE. [Concomitant]
     Active Substance: TORSEMIDE
     Indication: DIURETIC THERAPY
  6. VITAMIN D [Concomitant]
     Active Substance: CHOLECALCIFEROL
     Indication: PRODUCT USED FOR UNKNOWN INDICATION
  7. ERYTHROMYCIN. [Concomitant]
     Active Substance: ERYTHROMYCIN
     Indication: PSORIASIS
  8. HUMIRA [Suspect]
     Active Substance: ADALIMUMAB
     Dates: start: 20140412, end: 20140412
  9. HUMIRA [Suspect]
     Active Substance: ADALIMUMAB
     Dates: start: 20140426
  10. FLOMAX [Concomitant]
     Active Substance: TAMSULOSIN HYDROCHLORIDE
     Indication: OSTEOPOROSIS
  11. POTASSIUM [Concomitant]
     Active Substance: POTASSIUM
     Indication: SUPPLEMENTATION THERAPY
  12. FOLIC ACID. [Concomitant]
     Active Substance: FOLIC ACID
     Indication: SUPPLEMENTATION THERAPY

REACTIONS (10)
  - Skin tightness [Unknown]
  - Skin exfoliation [Not Recovered/Not Resolved]
  - Psoriasis [Not Recovered/Not Resolved]
  - Dry skin [Unknown]
  - Cerumen impaction [Recovered/Resolved]
  - Pruritus [Not Recovered/Not Resolved]
  - Skin disorder [Not Recovered/Not Resolved]
  - Ear discomfort [Unknown]
  - Tinnitus [Recovered/Resolved]
  - Nasal congestion [Not Recovered/Not Resolved]

NARRATIVE: CASE EVENT DATE: 2014
